FAERS Safety Report 14202624 (Version 1)
Quarter: 2017Q4

REPORT INFORMATION
  Report Type: Spontaneous
  Country: US (occurrence: US)
  Receive Date: 20171118
  Receipt Date: 20171118
  Transmission Date: 20180321
  Serious: No
  Sender: FDA-Public Use
  Company Number: US-SHIRE-US201724283

PATIENT
  Age: 62 Year
  Sex: Female
  Weight: 135 kg

DRUGS (1)
  1. XIIDRA [Suspect]
     Active Substance: LIFITEGRAST
     Indication: DRY EYE
     Dosage: UNK, 2X/DAY:BID
     Route: 047
     Dates: start: 201707

REACTIONS (5)
  - Eye discharge [Recovered/Resolved]
  - Nasopharyngitis [Not Recovered/Not Resolved]
  - Instillation site pain [Recovered/Resolved]
  - Dysphonia [Not Recovered/Not Resolved]
  - Instillation site pruritus [Recovered/Resolved]

NARRATIVE: CASE EVENT DATE: 201707
